FAERS Safety Report 5644309-2 (Version None)
Quarter: 2008Q1

REPORT INFORMATION
  Report Type: 
  Country: None (occurrence: None)
  Receive Date: 20080229
  Receipt Date: 20080222
  Transmission Date: 20080703
  Serious: Yes (Hospitalization, Other)
  Sender: FDA-Public Use
  Company Number: PHEH2006US10882

PATIENT
  Age: 73 Year
  Sex: Male
  Weight: 79.365 kg

DRUGS (9)
  1. AREDIA [Suspect]
     Indication: MULTIPLE MYELOMA
     Dates: end: 20050301
  2. ZOMETA [Suspect]
     Indication: MULTIPLE MYELOMA
     Dates: start: 20050301, end: 20060101
  3. HUMULIN R [Concomitant]
  4. LIPITOR [Concomitant]
  5. DIGOXIN [Concomitant]
  6. LISINOPRIL [Concomitant]
  7. NEXIUM [Concomitant]
  8. VELCADE [Concomitant]
     Indication: MULTIPLE MYELOMA
  9. RADIOTHERAPY [Concomitant]

REACTIONS (21)
  - ANXIETY [None]
  - ARRHYTHMIA [None]
  - BONE DISORDER [None]
  - CARDIAC DISORDER [None]
  - CARDIAC FAILURE CONGESTIVE [None]
  - DEBRIDEMENT [None]
  - DECREASED INTEREST [None]
  - DENTAL OPERATION [None]
  - EJECTION FRACTION ABNORMAL [None]
  - GENERAL PHYSICAL HEALTH DETERIORATION [None]
  - IMPAIRED HEALING [None]
  - MULTIPLE MYELOMA [None]
  - OSTEOLYSIS [None]
  - OSTEOMYELITIS [None]
  - OSTEONECROSIS [None]
  - OSTEORADIONECROSIS [None]
  - PAIN [None]
  - PARAESTHESIA [None]
  - PRIMARY SEQUESTRUM [None]
  - RENAL FAILURE CHRONIC [None]
  - TOOTH EXTRACTION [None]
